FAERS Safety Report 5688797-4 (Version None)
Quarter: 2008Q1

REPORT INFORMATION
  Report Type: 
  Country: None (occurrence: None)
  Receive Date: 20080331
  Receipt Date: 20080318
  Transmission Date: 20080703
  Serious: Yes (Hospitalization)
  Sender: FDA-Public Use
  Company Number: GB-ROCHE-539607

PATIENT
  Age: 57 Year
  Sex: Female
  Weight: 106 kg

DRUGS (8)
  1. ORLISTAT [Suspect]
     Indication: OBESITY
     Route: 048
     Dates: start: 20070504
  2. LEVOTHYROXINE SODIUM [Concomitant]
     Indication: HYPOTHYROIDISM
     Route: 048
     Dates: start: 20040816
  3. LEVOTHYROXINE SODIUM [Concomitant]
     Route: 048
     Dates: start: 20080306
  4. NORTRIPTYLINE HCL [Concomitant]
     Indication: PAIN
     Dosage: AT NIGHT
     Route: 048
     Dates: start: 20070227
  5. ATENOLOL [Concomitant]
     Indication: ESSENTIAL HYPERTENSION
     Route: 048
     Dates: start: 20020101
  6. BENDROFLUAZIDE [Concomitant]
     Indication: ESSENTIAL HYPERTENSION
     Route: 048
     Dates: start: 20040816
  7. DOXAZOSIN MESYLATE [Concomitant]
     Indication: ESSENTIAL HYPERTENSION
     Route: 048
     Dates: start: 19990407
  8. MEBEVERINE [Concomitant]
     Indication: ABDOMINAL PAIN
     Route: 048
     Dates: start: 20030420

REACTIONS (1)
  - OVARIAN CYST [None]
